FAERS Safety Report 8536925-5 (Version None)
Quarter: 2012Q3

REPORT INFORMATION
  Report Type: 
  Country: None (occurrence: None)
  Receive Date: 20120725
  Receipt Date: 20120713
  Transmission Date: 20120928
  Serious: Yes (Other)
  Sender: FDA-Public Use
  Company Number: JP-SANOFI-AVENTIS-2012SA051442

PATIENT
  Sex: Female

DRUGS (11)
  1. TRANSAMINE CAP [Concomitant]
     Route: 048
     Dates: start: 20110830, end: 20110906
  2. CRESTOR [Concomitant]
     Route: 048
     Dates: start: 20080528
  3. LASIX [Concomitant]
     Route: 048
     Dates: start: 20110523, end: 20110901
  4. OLMESARTAN MEDOXOMIL [Concomitant]
     Route: 048
     Dates: start: 20110523, end: 20110613
  5. LOXOPROFEN [Concomitant]
     Route: 048
     Dates: start: 20110830, end: 20110906
  6. CELESTAMINE TAB [Concomitant]
     Route: 048
     Dates: start: 20110425, end: 20110601
  7. APIDRA [Suspect]
     Indication: DIABETES MELLITUS
     Dosage: 16-18-18
     Route: 058
     Dates: start: 20101008
  8. VALSARTAN AND HYDROCHLOROTHIAZIDE [Concomitant]
     Route: 048
     Dates: start: 20110614
  9. BANAN [Concomitant]
     Route: 048
     Dates: start: 20110830, end: 20110906
  10. LANTUS [Concomitant]
     Indication: DIABETES MELLITUS
     Dosage: DOSE:15 UNIT(S)
     Route: 058
     Dates: start: 20081017
  11. ALLEGRA [Concomitant]
     Route: 048
     Dates: start: 20110425, end: 20110601

REACTIONS (1)
  - RENAL IMPAIRMENT [None]
